FAERS Safety Report 9462448 (Version 1)
Quarter: 2013Q3

REPORT INFORMATION
  Report Type: Spontaneous
  Country: US (occurrence: None)
  Receive Date: 20130815
  Receipt Date: 20130815
  Transmission Date: 20140515
  Serious: Yes (Other)
  Sender: FDA-Public Use
  Company Number: None

PATIENT
  Age: 65 Year
  Sex: Female
  Weight: 58.06 kg

DRUGS (6)
  1. LAMICTAL [Suspect]
  2. LEVOTHYROXINE [Concomitant]
  3. ALBUTEROL SULFATE [Concomitant]
  4. LEVEMIR FLEXPEN [Concomitant]
  5. HUMALOG [Concomitant]
  6. BETAMETHASONE [Concomitant]

REACTIONS (5)
  - Rash [None]
  - Cognitive disorder [None]
  - Oedema [None]
  - Confusional state [None]
  - Vision blurred [None]
